FAERS Safety Report 16330510 (Version 4)
Quarter: 2019Q4

REPORT INFORMATION
  Report Type: Report from Study
  Country: GB (occurrence: GB)
  Receive Date: 20190520
  Receipt Date: 20191101
  Transmission Date: 20200122
  Serious: Yes (Life-Threatening, Hospitalization, Other)
  Sender: FDA-Public Use
  Company Number: GB-CELLTRION INC.-2018GB024535

PATIENT

DRUGS (23)
  1. TRUXIMA [Suspect]
     Active Substance: RITUXIMAB-ABBS
     Dosage: 800 MG 3 WEEKLY
     Route: 042
     Dates: start: 20180511, end: 20180511
  2. TRUXIMA [Suspect]
     Active Substance: RITUXIMAB-ABBS
     Dosage: 800 MG 3 WEEKLY
     Route: 042
     Dates: start: 20180626
  3. CODEINE [Concomitant]
     Active Substance: CODEINE
     Dosage: 15 MG
  4. TRUXIMA [Suspect]
     Active Substance: RITUXIMAB-ABBS
     Dosage: 800 MG 3 WEEKLY
     Route: 042
     Dates: start: 20180717
  5. TAMSULOSIN [Concomitant]
     Active Substance: TAMSULOSIN
     Dosage: 400 MCG
  6. CO AMILOFRUSE [Concomitant]
     Active Substance: AMILORIDE HYDROCHLORIDE\FUROSEMIDE
     Dosage: 5MG/40MG
  7. TRUXIMA [Suspect]
     Active Substance: RITUXIMAB-ABBS
     Indication: DIFFUSE LARGE B-CELL LYMPHOMA
     Dosage: 800 MG 3 WEEKLY
     Route: 042
     Dates: start: 20180511, end: 20180511
  8. TRUXIMA [Suspect]
     Active Substance: RITUXIMAB-ABBS
     Dosage: 800 MG 3 WEEKLY
     Route: 042
     Dates: start: 20180807
  9. TRUXIMA [Suspect]
     Active Substance: RITUXIMAB-ABBS
     Dosage: 800 MG 3 WEEKLY
     Route: 042
     Dates: start: 20180828, end: 20180828
  10. CLINITAS HYDRATE [Concomitant]
     Dosage: 0.2% EYE GEL
  11. TRUXIMA [Suspect]
     Active Substance: RITUXIMAB-ABBS
     Dosage: 800 MG 3 WEEKLY
     Route: 042
     Dates: start: 20180828, end: 20180828
  12. CAPASAL [Concomitant]
     Dosage: UNK
  13. RIVAROXABAN [Concomitant]
     Active Substance: RIVAROXABAN
     Dosage: 20 MG
  14. URSODEOXYCHOLIC AC [Concomitant]
     Dosage: 150 MG
  15. SIMVASTATIN. [Concomitant]
     Active Substance: SIMVASTATIN
     Dosage: 40 MG
  16. MESALAZINE [Concomitant]
     Active Substance: MESALAMINE
     Dosage: 1.2 G
  17. TRUXIMA [Suspect]
     Active Substance: RITUXIMAB-ABBS
     Dosage: 800 MG 3 WEEKLY
     Route: 042
     Dates: start: 20180605
  18. IRBESARTAN. [Concomitant]
     Active Substance: IRBESARTAN
     Dosage: 150 MG
  19. LANSOPRAZOLE. [Concomitant]
     Active Substance: LANSOPRAZOLE
     Dosage: 30 MG
  20. BUTEC [Concomitant]
     Active Substance: BUPRENORPHINE
     Dosage: 15MCG/HR TRANSDERMAL PATCH
     Route: 062
  21. EPIMAX [Concomitant]
     Dosage: OATMEAL CREAM
  22. BUDESONIDE. [Concomitant]
     Active Substance: BUDESONIDE
     Dosage: 2 MG FOAM ENEMA
  23. LOPERAMIDE [Concomitant]
     Active Substance: LOPERAMIDE
     Dosage: UNK

REACTIONS (4)
  - Cellulitis [Not Recovered/Not Resolved]
  - Infusion related reaction [Recovered/Resolved]
  - Underdose [Unknown]
  - Squamous cell carcinoma [Recovered/Resolved]

NARRATIVE: CASE EVENT DATE: 20180511
